FAERS Safety Report 12948575 (Version 2)
Quarter: 2017Q1

REPORT INFORMATION
  Report Type: Spontaneous
  Country: US (occurrence: US)
  Receive Date: 20161117
  Receipt Date: 20170217
  Transmission Date: 20170428
  Serious: No
  Sender: FDA-Public Use
  Company Number: US-ALVOGEN-2016-ALVOGEN-029962

PATIENT
  Sex: Female

DRUGS (2)
  1. EXEMESTANE. [Suspect]
     Active Substance: EXEMESTANE
     Dates: start: 201608, end: 201608
  2. AVASTIN [Concomitant]
     Active Substance: BEVACIZUMAB
     Indication: PRODUCT USED FOR UNKNOWN INDICATION

REACTIONS (1)
  - Lymphoedema [Recovering/Resolving]
